FAERS Safety Report 23102729 (Version 1)
Quarter: 2023Q4

REPORT INFORMATION
  Report Type: Spontaneous
  Country: GB (occurrence: GB)
  Receive Date: 20231025
  Receipt Date: 20231025
  Transmission Date: 20240109
  Serious: Yes (Other)
  Sender: FDA-Public Use
  Company Number: None

PATIENT
  Age: 76 Year
  Sex: Male

DRUGS (2)
  1. LACOSAMIDE [Suspect]
     Active Substance: LACOSAMIDE
     Indication: Trigeminal neuralgia
     Dosage: 100 MILLIGRAM, BID (LOWER DOSE)
     Route: 065
  2. LACOSAMIDE [Suspect]
     Active Substance: LACOSAMIDE
     Dosage: 300 MILLIGRAM, QD
     Route: 065

REACTIONS (4)
  - Cervical vertebral fracture [Unknown]
  - Fall [Recovering/Resolving]
  - Head injury [Unknown]
  - Somnolence [Unknown]

NARRATIVE: CASE EVENT DATE: 20230815
